FAERS Safety Report 11857143 (Version 2)
Quarter: 2016Q1

REPORT INFORMATION
  Report Type: Spontaneous
  Country: US (occurrence: US)
  Receive Date: 20151221
  Receipt Date: 20160106
  Transmission Date: 20160526
  Serious: No
  Sender: FDA-Public Use
  Company Number: US-PFIZER INC-2015447630

PATIENT
  Age: 65 Year
  Sex: Female
  Weight: 53.7 kg

DRUGS (3)
  1. LYRICA [Suspect]
     Active Substance: PREGABALIN
     Indication: NEUROPATHY PERIPHERAL
     Dosage: 150 MG ONE IN THE MORNING AND ONE AT NIGHT BEFORE THE BED
     Dates: start: 201509
  2. METFORMIN [Concomitant]
     Active Substance: METFORMIN HYDROCHLORIDE
     Indication: TYPE 2 DIABETES MELLITUS
  3. OXYCODONE [Concomitant]
     Active Substance: OXYCODONE
     Indication: PAIN
     Dosage: 7.5 MG, UNK

REACTIONS (12)
  - Vision blurred [Unknown]
  - Weight increased [Unknown]
  - Pain [Unknown]
  - Peripheral swelling [Unknown]
  - Mania [Unknown]
  - Drug ineffective [Unknown]
  - Abdominal distension [Unknown]
  - Hallucination [Unknown]
  - Insomnia [Unknown]
  - Eating disorder [Unknown]
  - Nightmare [Unknown]
  - Depressed mood [Unknown]
